FAERS Safety Report 8686578 (Version 2)
Quarter: 2013Q4

REPORT INFORMATION
  Report Type: Spontaneous
  Country: KR (occurrence: KR)
  Receive Date: 20120726
  Receipt Date: 20131105
  Transmission Date: 20140711
  Serious: Yes (Hospitalization)
  Sender: FDA-Public Use
  Company Number: KR-MSD-1207KOR008073

PATIENT
  Age: 73 Year
  Sex: Male

DRUGS (2)
  1. COSOPT [Suspect]
     Indication: GLAUCOMA
     Route: 047
  2. GINEXIN F [Concomitant]
     Dosage: UNK
     Dates: start: 201108

REACTIONS (4)
  - Loss of consciousness [Recovered/Resolved]
  - Cerebral ischaemia [Unknown]
  - Decreased appetite [Unknown]
  - Dysgeusia [Unknown]
